FAERS Safety Report 7325391-3 (Version None)
Quarter: 2011Q1

REPORT INFORMATION
  Report Type: 
  Country: None (occurrence: None)
  Receive Date: 20110302
  Receipt Date: 20110224
  Transmission Date: 20110831
  Serious: Yes (Life-Threatening, Hospitalization)
  Sender: FDA-Public Use
  Company Number: US-US-EMD SERONO, INC.-230065J07USA

PATIENT
  Sex: Female

DRUGS (4)
  1. REBIF [Suspect]
     Route: 058
     Dates: start: 20080530
  2. CELEBREX [Suspect]
     Indication: ARTHRITIS
     Route: 065
  3. INFLAMMATORY DRUG [Concomitant]
     Indication: OSTEOARTHRITIS
     Route: 065
  4. REBIF [Suspect]
     Indication: MULTIPLE SCLEROSIS
     Route: 058
     Dates: start: 20050501, end: 20071001

REACTIONS (12)
  - LOSS OF CONSCIOUSNESS [None]
  - PNEUMONIA [None]
  - MULTIPLE SCLEROSIS RELAPSE [None]
  - INFLUENZA LIKE ILLNESS [None]
  - PULMONARY THROMBOSIS [None]
  - THROMBOSIS [None]
  - VENOUS THROMBOSIS [None]
  - INFLUENZA [None]
  - INJECTION SITE ERYTHEMA [None]
  - ARTERIAL THROMBOSIS [None]
  - INTERNATIONAL NORMALISED RATIO DECREASED [None]
  - SINUSITIS [None]
